FAERS Safety Report 20445385 (Version 1)
Quarter: 2022Q1

REPORT INFORMATION
  Report Type: Other
  Country: CN (occurrence: None)
  Receive Date: 20220208
  Receipt Date: 20220208
  Transmission Date: 20220423
  Serious: Yes (Other)
  Sender: FDA-Public Use
  Company Number: CN-ROCHE-3014388

PATIENT

DRUGS (5)
  1. TRASTUZUMAB [Suspect]
     Active Substance: TRASTUZUMAB
     Indication: HER2 positive breast cancer
     Dosage: INITIAL DOSE
     Route: 042
  2. TRASTUZUMAB [Suspect]
     Active Substance: TRASTUZUMAB
     Route: 042
  3. PERTUZUMAB [Suspect]
     Active Substance: PERTUZUMAB
     Indication: HER2 positive breast cancer
     Dosage: INITIAL DOSE
     Route: 042
  4. PERTUZUMAB [Suspect]
     Active Substance: PERTUZUMAB
     Route: 042
  5. PYROTINIB [Suspect]
     Active Substance: PYROTINIB
     Indication: HER2 positive breast cancer
     Dosage: 400 MG/D
     Route: 048

REACTIONS (12)
  - Diarrhoea [Unknown]
  - Leukopenia [Unknown]
  - Neutropenia [Unknown]
  - Haemoglobin decreased [Unknown]
  - Thrombocytopenia [Unknown]
  - Transaminases increased [Unknown]
  - Palmar-plantar erythrodysaesthesia syndrome [Unknown]
  - Neuropathy peripheral [Unknown]
  - Nausea [Unknown]
  - Vomiting [Unknown]
  - Cough [Unknown]
  - Blood potassium decreased [Unknown]
